FAERS Safety Report 5821775-0 (Version None)
Quarter: 2008Q3

REPORT INFORMATION
  Report Type: 
  Country: None (occurrence: None)
  Receive Date: 20080724
  Receipt Date: 20080714
  Transmission Date: 20090109
  Serious: Yes (Hospitalization, Disabling, Other)
  Sender: FDA-Public Use
  Company Number: US-PFIZER INC-2008040488

PATIENT
  Sex: Female

DRUGS (3)
  1. CELEBREX [Suspect]
     Indication: PAIN MANAGEMENT
     Route: 048
  2. CELEBREX [Suspect]
     Indication: BACK DISORDER
  3. CELEBREX [Suspect]
     Indication: ILL-DEFINED DISORDER

REACTIONS (9)
  - ANXIETY [None]
  - ARRHYTHMIA [None]
  - ARTERIAL DISORDER [None]
  - BACK PAIN [None]
  - CHEST PAIN [None]
  - DEPRESSION [None]
  - OEDEMA PERIPHERAL [None]
  - PARALYSIS [None]
  - PARKINSON'S DISEASE [None]
